FAERS Safety Report 6718388-5 (Version None)
Quarter: 2010Q2

REPORT INFORMATION
  Report Type: 
  Country: None (occurrence: None)
  Receive Date: 20100504
  Receipt Date: 20100423
  Transmission Date: 20101027
  Serious: Yes (Hospitalization, Other)
  Sender: FDA-Public Use
  Company Number: 7002477

PATIENT
  Sex: Male
  Weight: 79 kg

DRUGS (4)
  1. REBIF [Suspect]
     Indication: MULTIPLE SCLEROSIS
     Dosage: 44 MCG
     Dates: start: 20020101, end: 20100401
  2. FLOMAX (MORNIFLUMATE) [Concomitant]
  3. BACLOFEN [Concomitant]
  4. ASPIRIN [Concomitant]

REACTIONS (6)
  - BALANCE DISORDER [None]
  - CAROTID ARTERY OCCLUSION [None]
  - CEREBROVASCULAR ACCIDENT [None]
  - FALL [None]
  - NECK INJURY [None]
  - WALKING AID USER [None]
